FAERS Safety Report 19377194 (Version 1)
Quarter: 2021Q2

REPORT INFORMATION
  Report Type: Spontaneous
  Country: None (occurrence: A1)
  Receive Date: 20210604
  Receipt Date: 20210604
  Transmission Date: 20210717
  Serious: No
  Sender: FDA-Public Use
  Company Number: A1-ARMSTRONG PHARMACEUTICALS, INC.-2112369

PATIENT
  Sex: Female

DRUGS (1)
  1. PRIMATENE MIST [Suspect]
     Active Substance: EPINEPHRINE
     Route: 055

REACTIONS (4)
  - Burning sensation [Unknown]
  - Vomiting [Unknown]
  - Dyspnoea [Unknown]
  - Cough [Unknown]
